FAERS Safety Report 13583559 (Version 2)
Quarter: 2017Q2

REPORT INFORMATION
  Report Type: Report from Study
  Country: None (occurrence: PR)
  Receive Date: 20170526
  Receipt Date: 20170608
  Transmission Date: 20170830
  Serious: Yes (Hospitalization, Other)
  Sender: FDA-Public Use
  Company Number: PR-ABBVIE-17K-131-1984413-00

PATIENT
  Sex: Male
  Weight: 44.04 kg

DRUGS (3)
  1. DIFLUCAN [Suspect]
     Active Substance: FLUCONAZOLE
     Indication: FUNGAL INFECTION
     Route: 065
     Dates: start: 2015
  2. HUMIRA [Suspect]
     Active Substance: ADALIMUMAB
     Indication: CROHN^S DISEASE
     Route: 058
     Dates: end: 2015
  3. HUMIRA [Suspect]
     Active Substance: ADALIMUMAB
     Route: 058
     Dates: end: 201704

REACTIONS (10)
  - Post procedural inflammation [Recovered/Resolved]
  - Asthenia [Recovered/Resolved]
  - Febrile convulsion [Recovered/Resolved]
  - Malnutrition [Recovered/Resolved]
  - Abdominal distension [Recovered/Resolved]
  - Fungal infection [Recovered/Resolved]
  - Pyrexia [Recovered/Resolved]
  - Post procedural complication [Recovered/Resolved]
  - Small intestinal stenosis [Unknown]
  - Hypothyroidism [Unknown]
